FAERS Safety Report 7967434-X (Version None)
Quarter: 2011Q4

REPORT INFORMATION
  Report Type: 
  Country: None (occurrence: None)
  Receive Date: 20111207
  Receipt Date: 20111129
  Transmission Date: 20120403
  Serious: Yes (Hospitalization, Other)
  Sender: FDA-Public Use
  Company Number: 11-000072

PATIENT
  Age: 33 Year
  Sex: Female
  Weight: 61.2 kg

DRUGS (1)
  1. LOESTRIN 24 FE [Suspect]
     Indication: MENORRHAGIA
     Dosage: 20/1000 UG, QD, ORAL
     Route: 048
     Dates: start: 20080101, end: 20080101

REACTIONS (15)
  - VASCULAR OCCLUSION [None]
  - RETROPERITONEAL HAEMATOMA [None]
  - PALLOR [None]
  - VENOUS INSUFFICIENCY [None]
  - HYPERHIDROSIS [None]
  - PRESYNCOPE [None]
  - HAEMOGLOBIN DECREASED [None]
  - SEROMA [None]
  - VASCULAR COMPLICATION ASSOCIATED WITH DEVICE [None]
  - NAUSEA [None]
  - THROMBOSIS [None]
  - VENOUS STENOSIS [None]
  - OEDEMA PERIPHERAL [None]
  - HEART RATE INCREASED [None]
  - CHOLELITHIASIS [None]
